FAERS Safety Report 5822518-7 (Version None)
Quarter: 2008Q3

REPORT INFORMATION
  Report Type: 
  Country: None (occurrence: None)
  Receive Date: 20080725
  Receipt Date: 20071201
  Transmission Date: 20090109
  Serious: No
  Sender: FDA-Public Use
  Company Number: US-AMGEN-KDL255415

PATIENT
  Sex: Female

DRUGS (18)
  1. PROCRIT [Suspect]
     Indication: ANAEMIA
     Route: 058
     Dates: start: 20071112
  2. CALCIUM [Concomitant]
  3. IRON [Concomitant]
  4. COLACE [Concomitant]
  5. FUROSEMIDE [Concomitant]
  6. LISINOPRIL [Concomitant]
  7. DIGOXIN [Concomitant]
  8. FENOFIBRATE [Concomitant]
     Dates: start: 20071024
  9. FISH OIL [Concomitant]
  10. OXAZEPAM [Concomitant]
  11. CENTRUM SILVER [Concomitant]
     Route: 048
  12. METAMUCIL [Concomitant]
     Route: 048
  13. LEVOTHROID [Concomitant]
     Dates: start: 20070901
  14. LOVASTATIN [Concomitant]
  15. PRILOSEC [Concomitant]
     Route: 048
  16. INSULIN [Concomitant]
  17. ASCORBIC ACID [Concomitant]
  18. HUMULIN N [Concomitant]

REACTIONS (2)
  - ABNORMAL BEHAVIOUR [None]
  - BLOOD GLUCOSE DECREASED [None]
